FAERS Safety Report 9363487 (Version 2)
Quarter: 2013Q3

REPORT INFORMATION
  Report Type: Spontaneous
  Country: US (occurrence: US)
  Receive Date: 20130624
  Receipt Date: 20130819
  Transmission Date: 20140515
  Serious: Yes (Hospitalization, Other)
  Sender: FDA-Public Use
  Company Number: US-GENZYME-CERZ-1003064

PATIENT
  Age: 86 Year
  Sex: Male
  Weight: 74.83 kg

DRUGS (1)
  1. CEREZYME [Suspect]
     Indication: GAUCHER^S DISEASE
     Dosage: 58.8 U/KG, Q3W
     Route: 042
     Dates: start: 19921119

REACTIONS (5)
  - Oxygen saturation [Not Recovered/Not Resolved]
  - Lung infection [Not Recovered/Not Resolved]
  - Upper limb fracture [Not Recovered/Not Resolved]
  - Staphylococcal infection [Unknown]
  - Fall [Not Recovered/Not Resolved]
